FAERS Safety Report 8531949 (Version 2)
Quarter: 2013Q1

REPORT INFORMATION
  Report Type: Report from Study
  Country: US (occurrence: US)
  Receive Date: 20120426
  Receipt Date: 20130108
  Transmission Date: 20140127
  Serious: Yes (Hospitalization)
  Sender: FDA-Public Use
  Company Number: US-ACTELION-A-NJ2011-54572

PATIENT
  Age: 74 Year
  Sex: Female

DRUGS (2)
  1. TRACLEER [Suspect]
     Indication: PULMONARY ARTERIAL HYPERTENSION
     Dosage: UNK
     Route: 048
  2. ADCIRCA [Concomitant]

REACTIONS (16)
  - Blood glucose increased [Unknown]
  - Contusion [Unknown]
  - Bronchitis [Unknown]
  - Fluid overload [Unknown]
  - Fluid retention [Unknown]
  - Dyspnoea [Unknown]
  - Syncope [Unknown]
  - Anaemia [Unknown]
  - Transfusion [Unknown]
  - Head injury [Recovered/Resolved]
  - Haemorrhage [Recovered/Resolved]
  - Cough [Unknown]
  - Wheezing [Unknown]
  - Fatigue [Unknown]
  - Dizziness [Unknown]
  - Malaise [Unknown]
